FAERS Safety Report 19000454 (Version 1)
Quarter: 2021Q1

REPORT INFORMATION
  Report Type: Spontaneous
  Country: US (occurrence: US)
  Receive Date: 20210311
  Receipt Date: 20210311
  Transmission Date: 20210420
  Serious: No
  Sender: FDA-Public Use
  Company Number: US-ADAMAS_PHARMACEUTICALS-USA-POI0573202000614

PATIENT
  Age: 71 Year
  Sex: Female

DRUGS (6)
  1. CARBIDOPA AND LEVODOPA [Concomitant]
     Active Substance: CARBIDOPA\LEVODOPA
     Indication: PARKINSON^S DISEASE
     Dosage: 25 AND 100 MG
  2. NEUPRO [Concomitant]
     Active Substance: ROTIGOTINE
     Indication: PARKINSON^S DISEASE
     Route: 061
  3. OSMOLEX ER [Suspect]
     Active Substance: AMANTADINE
     Indication: PARKINSON^S DISEASE
     Dates: start: 2019, end: 201909
  4. OSMOLEX ER [Suspect]
     Active Substance: AMANTADINE
     Dates: start: 20200220
  5. OSMOLEX ER [Suspect]
     Active Substance: AMANTADINE
     Dates: start: 201909, end: 20200128
  6. OSMOLEX ER [Suspect]
     Active Substance: AMANTADINE
     Dates: start: 202002, end: 20200219

REACTIONS (1)
  - Memory impairment [Not Recovered/Not Resolved]

NARRATIVE: CASE EVENT DATE: 2019
